FAERS Safety Report 13006649 (Version 1)
Quarter: 2016Q4

REPORT INFORMATION
  Report Type: Spontaneous
  Country: FR (occurrence: FR)
  Receive Date: 20161207
  Receipt Date: 20161207
  Transmission Date: 20170207
  Serious: Yes (Death, Hospitalization, Other)
  Sender: FDA-Public Use
  Company Number: FR-ELI_LILLY_AND_COMPANY-FR201611009619

PATIENT
  Age: 86 Year
  Sex: Female

DRUGS (10)
  1. FUROSEMIDE. [Concomitant]
     Active Substance: FUROSEMIDE
     Dosage: 40 MG, BID
     Route: 048
  2. BISOPROLOL [Concomitant]
     Active Substance: BISOPROLOL
     Dosage: 1.25 MG, QD
     Route: 048
  3. NIVESTIM [Concomitant]
     Active Substance: FILGRASTIM
     Dosage: UNK, OTHER (ON TUESDAY^S AND THURSDAY^S)
     Route: 058
  4. PREGABALINE [Concomitant]
     Active Substance: PREGABALIN
     Dosage: 100 MG, QD
     Route: 048
  5. GEMZAR [Suspect]
     Active Substance: GEMCITABINE HYDROCHLORIDE
     Indication: OVARIAN CANCER METASTATIC
     Dosage: 1000 MG/M2, WEEKLY (1/W)
     Route: 042
     Dates: start: 20160426
  6. KARDEGIC [Concomitant]
     Active Substance: ASPIRIN LYSINE
     Dosage: 75 MG, QD
     Route: 048
  7. PANTOPRAZOLE [Concomitant]
     Active Substance: PANTOPRAZOLE SODIUM
     Dosage: 40 MG, QD
     Route: 048
  8. CORTANCYL [Concomitant]
     Active Substance: PREDNISONE
     Dosage: 20 MG, UNK
     Route: 048
  9. AMIODARONE [Concomitant]
     Active Substance: AMIODARONE
     Dosage: 200 MG, QD
     Route: 048
  10. TAHOR [Concomitant]
     Active Substance: ATORVASTATIN CALCIUM
     Dosage: 40 MG, QD
     Route: 048

REACTIONS (5)
  - Pneumonia [Unknown]
  - Respiratory failure [Unknown]
  - Renal impairment [Unknown]
  - Acute pulmonary oedema [Unknown]
  - Lung disorder [Fatal]

NARRATIVE: CASE EVENT DATE: 20160520
